FAERS Safety Report 25477275 (Version 1)
Quarter: 2025Q2

REPORT INFORMATION
  Report Type: Spontaneous
  Country: JP (occurrence: JP)
  Receive Date: 20250625
  Receipt Date: 20250625
  Transmission Date: 20250717
  Serious: Yes (Other)
  Sender: RANBAXY
  Company Number: JP-SUN PHARMACEUTICAL INDUSTRIES INC-2025R1-513284

PATIENT
  Sex: Female
  Weight: 3.284 kg

DRUGS (2)
  1. INSULIN NOS [Suspect]
     Active Substance: INSULIN NOS
     Indication: Diabetes complicating pregnancy
     Route: 064
  2. NIFEDIPINE [Suspect]
     Active Substance: NIFEDIPINE
     Indication: Hypertension
     Dosage: 20 MILLIGRAM, QD
     Route: 064

REACTIONS (4)
  - Foetal exposure during pregnancy [Unknown]
  - Premature baby [Unknown]
  - Hypoglycaemia neonatal [Unknown]
  - Large for dates baby [Unknown]
